FAERS Safety Report 17833345 (Version 1)
Quarter: 2020Q2

REPORT INFORMATION
  Report Type: Spontaneous
  Country: CA (occurrence: CA)
  Receive Date: 20200528
  Receipt Date: 20200528
  Transmission Date: 20200714
  Serious: Yes (Other)
  Sender: FDA-Public Use
  Company Number: CA-BAXTER-2020BAX010748

PATIENT
  Sex: Female

DRUGS (1)
  1. 0.9% SODIUM CHLORIDE IRRIGATION [Suspect]
     Active Substance: SODIUM CHLORIDE
     Indication: PRODUCT USED FOR UNKNOWN INDICATION
     Dosage: DOSAGE FORM: SOLUTION INTRAPERITONEAL
     Route: 065

REACTIONS (4)
  - Wrong technique in product usage process [Unknown]
  - Adverse event [Unknown]
  - Device malfunction [Unknown]
  - Product label confusion [Unknown]
